FAERS Safety Report 6255929-9 (Version None)
Quarter: 2009Q3

REPORT INFORMATION
  Report Type: 
  Country: None (occurrence: None)
  Receive Date: 20090706
  Receipt Date: 20070921
  Transmission Date: 20100115
  Serious: Yes (Hospitalization, Other)
  Sender: FDA-Public Use
  Company Number: US-ASTRAZENECA-2007UW06132

PATIENT
  Age: 15213 Day
  Sex: Female
  Weight: 81.6 kg

DRUGS (27)
  1. SEROQUEL [Suspect]
     Indication: SLEEP DISORDER
     Route: 048
     Dates: start: 20020101, end: 20060101
  2. SEROQUEL [Suspect]
     Dosage: 100-200 MG
     Route: 048
     Dates: start: 20040920
  3. LYRICA [Concomitant]
     Route: 048
     Dates: start: 20030330
  4. AMBIEN [Concomitant]
     Dates: start: 20010717
  5. NEURONTIN [Concomitant]
     Dosage: EVERY EIGHT HOURS
     Route: 048
     Dates: start: 20021023
  6. PLAVIX [Concomitant]
     Dates: start: 20050413
  7. AVANDIA [Concomitant]
     Dosage: TWO TIMES A DAY
     Route: 048
     Dates: start: 20021023
  8. GLUCOPHAGE [Concomitant]
     Dates: start: 20021023
  9. VASOTEC [Concomitant]
     Dosage: EVERY DAY
     Dates: start: 20021023
  10. CELEREX [Concomitant]
     Dates: start: 20040408
  11. HUMULIN R [Concomitant]
     Route: 058
     Dates: start: 20010717
  12. EVISTA [Concomitant]
     Dosage: 60 MG. QD
     Dates: start: 20050413
  13. BENADRYL [Concomitant]
     Dosage: EVERY DAY
     Dates: start: 20021023
  14. RISPERDAL [Concomitant]
     Dosage: EVERY DAY
     Route: 048
     Dates: start: 20021023
  15. PROZAC [Concomitant]
     Route: 048
     Dates: start: 20021023
  16. DEMEROL [Concomitant]
  17. MAALOX PLUS [Concomitant]
     Indication: DYSPEPSIA
     Route: 048
     Dates: start: 20040408
  18. MAALOX PLUS [Concomitant]
     Indication: ABDOMINAL PAIN UPPER
     Route: 048
     Dates: start: 20040408
  19. LEXAPRO [Concomitant]
     Route: 048
     Dates: start: 20030330
  20. LASIX [Concomitant]
     Dates: start: 20050413
  21. STARLIX [Concomitant]
     Dates: start: 20050413
  22. AVANDAMET [Concomitant]
     Dosage: 4/500 MG, BID
     Dates: start: 20040929
  23. ASPIRIN [Concomitant]
     Dates: start: 20040408
  24. RESTORIL [Concomitant]
     Dosage: 15 MG, PRN AT NIGHT
     Route: 048
     Dates: start: 20040408
  25. AMITRIPTYLINE HCL [Concomitant]
     Dosage: 50 MG, PRN, DAILY
     Route: 048
     Dates: start: 20040408
  26. WELLBUTRIN [Concomitant]
  27. ACTOS [Concomitant]
     Dates: start: 20050413

REACTIONS (6)
  - DIABETES MELLITUS INADEQUATE CONTROL [None]
  - DIABETIC FOOT [None]
  - DIABETIC KETOACIDOSIS [None]
  - ILEUS PARALYTIC [None]
  - METABOLIC SYNDROME [None]
  - OSTEOLYSIS [None]
